FAERS Safety Report 6790226-4 (Version None)
Quarter: 2010Q2

REPORT INFORMATION
  Report Type: 
  Country: None (occurrence: None)
  Receive Date: 20100624
  Receipt Date: 20100610
  Transmission Date: 20101027
  Serious: Yes (Other)
  Sender: FDA-Public Use
  Company Number: CA-BAYER-201025254NA

PATIENT
  Age: 59 Year
  Sex: Female
  Weight: 51 kg

DRUGS (5)
  1. CLIMARA [Suspect]
     Indication: DRUG USE FOR UNKNOWN INDICATION
     Dosage: ONE PATCH WAS USED ONCE PER WEEK
     Route: 062
     Dates: start: 20100601
  2. CALCIUM + VITAMIN D [Concomitant]
     Route: 048
  3. IMOVANE [Concomitant]
     Route: 048
  4. PROMETRIUM [Concomitant]
     Route: 048
  5. VAGIFEM [Concomitant]
     Route: 067

REACTIONS (5)
  - BREAST ENLARGEMENT [None]
  - BREAST MASS [None]
  - BREAST PAIN [None]
  - BREAST SWELLING [None]
  - ERYTHEMA [None]
